FAERS Safety Report 13039730 (Version 2)
Quarter: 2017Q1

REPORT INFORMATION
  Report Type: Spontaneous
  Country: US (occurrence: US)
  Receive Date: 20161219
  Receipt Date: 20170222
  Transmission Date: 20170428
  Serious: Yes (Hospitalization, Other)
  Sender: FDA-Public Use
  Company Number: US-BAYER-2016-235868

PATIENT
  Age: 73 Year
  Sex: Female
  Weight: 78.5 kg

DRUGS (20)
  1. LANOXIN [Concomitant]
     Active Substance: DIGOXIN
     Dosage: 125 ?G, UNK
     Route: 048
  2. DELTASONE [Concomitant]
     Active Substance: PREDNISONE
     Dosage: 1 MG, UNK
     Route: 048
  3. IMURAN [Concomitant]
     Active Substance: AZATHIOPRINE
     Dosage: 50 MG, UNK
     Route: 048
  4. PRILOSEC [Concomitant]
     Active Substance: OMEPRAZOLE MAGNESIUM
     Dosage: 20 MG, UNK
     Route: 048
  5. XARELTO [Concomitant]
     Active Substance: RIVAROXABAN
     Dosage: 20 MG, UNK
     Route: 048
  6. TYLENOL [Concomitant]
     Active Substance: ACETAMINOPHEN
     Dosage: 500 MG, UNK
     Route: 048
  7. ADEMPAS [Suspect]
     Active Substance: RIOCIGUAT
     Indication: PULMONARY HYPERTENSION
     Dosage: 1.5 MG, TID
     Route: 048
     Dates: start: 20160927, end: 20161205
  8. ADEMPAS [Suspect]
     Active Substance: RIOCIGUAT
     Indication: PULMONARY HYPERTENSION
     Dosage: 1 MG, TID
     Route: 048
  9. OXYGEN. [Concomitant]
     Active Substance: OXYGEN
     Dosage: 2L
  10. LASIX [Concomitant]
     Active Substance: FUROSEMIDE
     Indication: PAIN
     Dosage: 20 MG, UNK
     Route: 048
  11. ERGOCALCIFEROL. [Concomitant]
     Active Substance: ERGOCALCIFEROL
     Dosage: UNK UNK, QD
  12. DELTASONE [Concomitant]
     Active Substance: PREDNISONE
     Dosage: 10 UNK, UNK
     Route: 048
  13. ZOFRAN [Concomitant]
     Active Substance: ONDANSETRON HYDROCHLORIDE
     Dosage: 4 MG, UNK
     Route: 048
  14. TYLENOL [Concomitant]
     Active Substance: ACETAMINOPHEN
     Dosage: 300-30 MG
     Route: 048
  15. CALCIUM [Concomitant]
     Active Substance: CALCIUM
  16. XARELTO [Concomitant]
     Active Substance: RIVAROXABAN
     Dosage: UNK
  17. SPIRIVA [Concomitant]
     Active Substance: TIOTROPIUM BROMIDE MONOHYDRATE
     Dosage: 2.5 ?G, UNK
     Route: 055
  18. PRAVASTATIN. [Concomitant]
     Active Substance: PRAVASTATIN
     Indication: MYOCARDIAL INFARCTION
     Dosage: 20 MG, UNK
     Route: 048
  19. DELTASONE [Concomitant]
     Active Substance: PREDNISONE
     Dosage: 5 MG, UNK
     Route: 048
  20. CYANOCOBALAMIN. [Concomitant]
     Active Substance: CYANOCOBALAMIN
     Dosage: UNK UNK, QD

REACTIONS (14)
  - Abdominal tenderness [Recovered/Resolved]
  - Vomiting [Recovered/Resolved]
  - Dyspnoea [Recovering/Resolving]
  - Troponin increased [None]
  - Abdominal pain [Recovered/Resolved]
  - Diarrhoea [Recovered/Resolved]
  - Chest pain [None]
  - Nausea [Recovered/Resolved]
  - Abdominal distension [Recovered/Resolved]
  - Small intestinal obstruction [Recovered/Resolved]
  - Acute kidney injury [Recovering/Resolving]
  - Hypophagia [Recovered/Resolved]
  - Oxygen saturation decreased [Recovering/Resolving]
  - Hypotension [None]

NARRATIVE: CASE EVENT DATE: 20161205
